FAERS Safety Report 7585112-6 (Version None)
Quarter: 2011Q3

REPORT INFORMATION
  Report Type: 
  Country: None (occurrence: None)
  Receive Date: 20110701
  Receipt Date: 20110623
  Transmission Date: 20111222
  Serious: Yes (Other)
  Sender: FDA-Public Use
  Company Number: IE-BIOGENIDEC-2011BI000931

PATIENT
  Age: 68 Year
  Sex: Female

DRUGS (6)
  1. ZANAFLEX [Concomitant]
  2. LYRICA [Concomitant]
  3. TYSABRI [Suspect]
     Indication: PROGRESSIVE MULTIPLE SCLEROSIS
     Route: 042
     Dates: start: 20070704, end: 20100505
  4. LIORESAI [Concomitant]
  5. CITALOPRAM HYDROBROMIDE [Concomitant]
  6. CALCIUM CARBONATE [Concomitant]

REACTIONS (4)
  - ORAL CAVITY CANCER METASTATIC [None]
  - LICHEN PLANUS [None]
  - CLAVICLE FRACTURE [None]
  - HIP FRACTURE [None]
